FAERS Safety Report 19395222 (Version 1)
Quarter: 2021Q2

REPORT INFORMATION
  Report Type: Spontaneous
  Country: US (occurrence: US)
  Receive Date: 20210609
  Receipt Date: 20210609
  Transmission Date: 20210717
  Serious: No
  Sender: FDA-Public Use
  Company Number: US-CELGENEUS-USA-20210600250

PATIENT
  Sex: Female
  Weight: 69 kg

DRUGS (1)
  1. REVLIMID [Suspect]
     Active Substance: LENALIDOMIDE
     Indication: PLASMA CELL MYELOMA
     Dosage: DOSE : 10MG;     FREQ : EVERY DAY
     Route: 048
     Dates: start: 20210524

REACTIONS (1)
  - Pruritus [Not Recovered/Not Resolved]
